FAERS Safety Report 14991264 (Version 2)
Quarter: 2018Q2

REPORT INFORMATION
  Report Type: Spontaneous
  Country: TW (occurrence: TW)
  Receive Date: 20180608
  Receipt Date: 20180611
  Transmission Date: 20180711
  Serious: Yes (Death, Other)
  Sender: FDA-Public Use
  Company Number: TW-UCBSA-2018024097

PATIENT
  Age: 43 Year
  Sex: Male

DRUGS (8)
  1. VIMPAT [Suspect]
     Active Substance: LACOSAMIDE
     Indication: OFF LABEL USE
     Dosage: 100 MG, 2X/DAY (BID)
     Dates: start: 20180519, end: 20180525
  2. VIMPAT [Suspect]
     Active Substance: LACOSAMIDE
     Indication: STATUS EPILEPTICUS
     Dosage: 200 MG, ONE TIME DOSE LOADING DOSE
     Dates: start: 20180519, end: 20180519
  3. KEPPRA [Suspect]
     Active Substance: LEVETIRACETAM
     Indication: OFF LABEL USE
  4. DORMICUM [Concomitant]
     Indication: STATUS EPILEPTICUS
  5. DEPAKINE [Concomitant]
     Active Substance: VALPROATE SODIUM
     Indication: STATUS EPILEPTICUS
     Dosage: UNK
  6. KEPPRA [Suspect]
     Active Substance: LEVETIRACETAM
     Indication: STATUS EPILEPTICUS
     Dosage: 1000 MG, 2X/DAY (BID)
     Dates: start: 201805
  7. DILANTIN [Concomitant]
     Active Substance: PHENYTOIN
     Indication: STATUS EPILEPTICUS
     Dosage: UNK
  8. THIAMYLAL [Concomitant]
     Active Substance: THIAMYLAL
     Indication: STATUS EPILEPTICUS
     Dosage: UNK

REACTIONS (4)
  - Off label use [Unknown]
  - Renal impairment [Unknown]
  - Septic shock [Fatal]
  - Hepatic function abnormal [Unknown]

NARRATIVE: CASE EVENT DATE: 201805
